FAERS Safety Report 16132793 (Version 1)
Quarter: 2019Q1

REPORT INFORMATION
  Report Type: Spontaneous
  Country: US (occurrence: US)
  Receive Date: 20190329
  Receipt Date: 20190329
  Transmission Date: 20190418
  Serious: No
  Sender: FDA-Public Use
  Company Number: US-PFIZER INC-2019129409

PATIENT
  Age: 90 Year
  Sex: Male

DRUGS (3)
  1. REVATIO [Suspect]
     Active Substance: SILDENAFIL CITRATE
     Dosage: 40 MG, 3X/DAY  (REVATIO 20MG 2 TABS THREE TIMES A DAY PO)
     Route: 048
     Dates: start: 20190115
  2. REVATIO [Suspect]
     Active Substance: SILDENAFIL CITRATE
     Indication: PULMONARY HYPERTENSION
     Dosage: 20 MG, UNK
     Route: 048
  3. REVATIO [Suspect]
     Active Substance: SILDENAFIL CITRATE
     Dosage: 10 MG, UNK
     Route: 048
     Dates: start: 20181113, end: 20190115

REACTIONS (2)
  - Product use issue [Unknown]
  - Fatigue [Unknown]
